FAERS Safety Report 7755365-X (Version None)
Quarter: 2011Q3

REPORT INFORMATION
  Report Type: 
  Country: None (occurrence: None)
  Receive Date: 20110914
  Receipt Date: 20110831
  Transmission Date: 20111222
  Serious: Yes (Other)
  Sender: FDA-Public Use
  Company Number: AUR-APL-2011-04982

PATIENT
  Age: 45 Year
  Sex: Male

DRUGS (3)
  1. VITAMIN D [Concomitant]
  2. ALENDRONATE SODIUM [Suspect]
     Indication: OSTEOPOROSIS
  3. CALCIUM CARBONATE [Concomitant]

REACTIONS (5)
  - LUMBAR VERTEBRAL FRACTURE [None]
  - JOINT DISLOCATION [None]
  - BACK PAIN [None]
  - PATHOLOGICAL FRACTURE [None]
  - ACETABULUM FRACTURE [None]
